FAERS Safety Report 7063256-5 (Version None)
Quarter: 2010Q4

REPORT INFORMATION
  Report Type: 
  Country: None (occurrence: None)
  Receive Date: 20101026
  Receipt Date: 20100708
  Transmission Date: 20110411
  Serious: No
  Sender: FDA-Public Use
  Company Number: US-PFIZER INC-2010086138

PATIENT
  Sex: Female
  Weight: 88.4 kg

DRUGS (4)
  1. LIPITOR [Suspect]
     Indication: BLOOD CHOLESTEROL INCREASED
     Dosage: 40 MG, 1X/DAY
     Route: 048
     Dates: start: 20091201
  2. GABAPENTIN [Concomitant]
     Indication: RESTLESS LEGS SYNDROME
     Dosage: UNK
  3. BENICAR [Concomitant]
     Indication: HYPERTENSION
     Dosage: UNK
  4. CLIMARA [Concomitant]
     Dosage: UNK

REACTIONS (3)
  - ARTHROPATHY [None]
  - MUSCLE SPASMS [None]
  - PARAESTHESIA [None]
